FAERS Safety Report 8432274-4 (Version None)
Quarter: 2012Q2

REPORT INFORMATION
  Report Type: 
  Country: None (occurrence: None)
  Receive Date: 20120613
  Receipt Date: 20120607
  Transmission Date: 20120825
  Serious: Yes (Other)
  Sender: FDA-Public Use
  Company Number: PHEH2012US011540

PATIENT
  Sex: Male

DRUGS (19)
  1. EXELON [Suspect]
     Indication: DEMENTIA WITH LEWY BODIES
     Route: 062
     Dates: start: 20100901
  2. REMERON [Interacting]
     Indication: DEPRESSION
     Dates: start: 20100901
  3. TRAZODONE HCL [Interacting]
     Indication: DEPRESSION
     Dates: start: 20100901
  4. NEURONTIN [Interacting]
     Dosage: 300 MG, TID
     Dates: start: 20100908
  5. NEURONTIN [Interacting]
     Dosage: 200 MG, UNK
     Dates: start: 20100901, end: 20100901
  6. VISTARIL [Interacting]
     Dates: start: 20100901
  7. NEURONTIN [Interacting]
     Dosage: 200 MG, TID
     Dates: start: 20100908
  8. NEURONTIN [Interacting]
     Dosage: 200 MG IN THE MORNING AND 300 MG AT NIGHT
     Dates: start: 20100917
  9. ATIVAN [Interacting]
     Dates: start: 20100901
  10. ANTIHISTAMINICS [Interacting]
     Dates: start: 20100901
  11. LAMICTAL [Interacting]
     Indication: DEMENTIA WITH LEWY BODIES
     Dates: start: 20100901
  12. ACETAMINOPHEN [Concomitant]
     Indication: PAIN
  13. NEURONTIN [Interacting]
     Dosage: 100 MG, TID
     Dates: start: 20100912
  14. NAMENDA [Interacting]
     Indication: DEMENTIA WITH LEWY BODIES
     Dates: start: 20100901
  15. TEMAZEPAM [Interacting]
     Indication: SLEEP DISORDER
     Dates: start: 20100901
  16. NEURONTIN [Interacting]
     Indication: DEMENTIA WITH LEWY BODIES
     Dosage: 400 MG, QD
     Dates: start: 20100907
  17. NEURONTIN [Interacting]
     Dosage: 200 MG, UNK
     Dates: start: 20100914
  18. NEURONTIN [Interacting]
     Dosage: 300 MG, TID
     Dates: start: 20100918
  19. ASPIRIN [Interacting]
     Indication: BLOOD VISCOSITY INCREASED
     Dates: start: 20100901

REACTIONS (2)
  - DRUG INTERACTION [None]
  - ABNORMAL BEHAVIOUR [None]
